FAERS Safety Report 8819116 (Version 1)
Quarter: 2012Q4

REPORT INFORMATION
  Report Type: 
  Country: MX (occurrence: MX)
  Receive Date: 20121001
  Receipt Date: 20121001
  Transmission Date: 20130627
  Serious: Yes (Death)
  Sender: FDA-Public Use
  Company Number: MX-BAYER-2012-101679

PATIENT
  Sex: Male
  Weight: 1.1 kg

DRUGS (4)
  1. CIPROXINA [Suspect]
  2. MEROPENEM [Suspect]
  3. VANCOMYCIN [Suspect]
  4. LINEZOLID [Suspect]

REACTIONS (1)
  - Systemic candida [Fatal]
